FAERS Safety Report 6056583-1 (Version None)
Quarter: 2009Q1

REPORT INFORMATION
  Report Type: 
  Country: None (occurrence: None)
  Receive Date: 20090126
  Receipt Date: 20090108
  Transmission Date: 20090719
  Serious: Yes (Hospitalization)
  Sender: FDA-Public Use
  Company Number: 8040807

PATIENT
  Age: 44 Year
  Sex: Female
  Weight: 88.6 kg

DRUGS (6)
  1. CIMZIA [Suspect]
     Indication: CROHN'S DISEASE
     Dosage: 400 MG SC
     Route: 058
     Dates: start: 20081019
  2. ASACOL [Concomitant]
  3. LISINOPRIL [Concomitant]
  4. PROTONIX [Concomitant]
  5. PREDNISONE [Concomitant]
  6. CALCIUM [Concomitant]

REACTIONS (3)
  - HYSTERECTOMY [None]
  - INCISION SITE COMPLICATION [None]
  - STAPHYLOCOCCAL INFECTION [None]
